FAERS Safety Report 10237121 (Version 1)
Quarter: 2014Q2

REPORT INFORMATION
  Report Type: Spontaneous
  Country: BR (occurrence: BR)
  Receive Date: 20140613
  Receipt Date: 20140613
  Transmission Date: 20141212
  Serious: Yes (Other)
  Sender: FDA-Public Use
  Company Number: BR-ABBVIE-14P-020-1245004-00

PATIENT
  Age: 48 Year
  Sex: Female
  Weight: 74 kg

DRUGS (5)
  1. HUMIRA [Suspect]
     Indication: ANKYLOSING SPONDYLITIS
     Dosage: NOT SPECIFIED
     Route: 058
     Dates: start: 20140507
  2. FLUOXETINE [Concomitant]
     Indication: MUSCLE RELAXANT THERAPY
     Dosage: TWICE DAILY
     Route: 048
     Dates: start: 20090101
  3. MIOSAN [Concomitant]
     Indication: MUSCLE RELAXANT THERAPY
     Dosage: ONCE A DAY
     Route: 048
     Dates: start: 20110101
  4. LOSARTAN [Concomitant]
     Indication: HYPERTENSION
     Dosage: ONCE A DAY
     Route: 048
     Dates: start: 20060101
  5. HIGROTON [Concomitant]
     Indication: DIURETIC THERAPY
     Dosage: ONCE A DAY
     Route: 048
     Dates: start: 20130101

REACTIONS (7)
  - Breast mass [Unknown]
  - Breast mass [Not Recovered/Not Resolved]
  - Thyroid neoplasm [Not Recovered/Not Resolved]
  - Headache [Recovering/Resolving]
  - Abdominal pain [Recovering/Resolving]
  - Thyroid neoplasm [Unknown]
  - Breast swelling [Not Recovered/Not Resolved]
